FAERS Safety Report 8089637-9 (Version None)
Quarter: 2012Q1

REPORT INFORMATION
  Report Type: 
  Country: None (occurrence: None)
  Receive Date: 20120128
  Receipt Date: 20110626
  Transmission Date: 20120608
  Serious: No
  Sender: FDA-Public Use
  Company Number: US-ABBOTT-11P-163-0728566-00

PATIENT
  Sex: Female

DRUGS (11)
  1. ENTOCORT EC [Concomitant]
     Indication: PRODUCT USED FOR UNKNOWN INDICATION
  2. FLUCONAZOLE [Concomitant]
     Indication: FUNGAL INFECTION
     Dosage: UNDER BREAST AND STOMACH
  3. HUMIRA [Suspect]
     Indication: CROHN'S DISEASE
     Dosage: DAY 1
     Route: 058
     Dates: start: 20110523
  4. NORVASC [Concomitant]
     Indication: HYPERTENSION
     Dosage: 10 MG - DAILY
  5. LISINOPRIL [Concomitant]
     Indication: HYPERTENSION
     Dosage: 10 MG - DAILY
  6. LEVICIN [Concomitant]
     Indication: ABDOMINAL PAIN UPPER
     Dosage: AS NEEDED - DOES NOT TAKE OFTEN
  7. TRAMADOL HCL [Concomitant]
     Indication: ARTHRALGIA
     Dosage: 50 MG - DAILY
  8. POTASSIUM CHLORIDE [Concomitant]
     Indication: ELECTROLYTE SUBSTITUTION THERAPY
     Dosage: ONE TABLESPOON IN JUICE EVERY MORNING
  9. ASPIRIN [Concomitant]
     Indication: PROPHYLAXIS
     Dosage: DAILY
  10. OMEPRAZOLE [Concomitant]
     Indication: GASTRIC DISORDER
     Dosage: 20 MG - DAILY
  11. HUMIRA [Suspect]
     Route: 058

REACTIONS (1)
  - INJECTION SITE HAEMATOMA [None]
